FAERS Safety Report 11516383 (Version 2)
Quarter: 2015Q4

REPORT INFORMATION
  Report Type: Spontaneous
  Country: US (occurrence: US)
  Receive Date: 20150917
  Receipt Date: 20151223
  Transmission Date: 20160304
  Serious: Yes (Other)
  Sender: FDA-Public Use
  Company Number: US-PFIZER INC-2015302991

PATIENT
  Age: 82 Year
  Sex: Female
  Weight: 51 kg

DRUGS (9)
  1. IBUPROFEN. [Suspect]
     Active Substance: IBUPROFEN
     Indication: CHILLS
  2. IBUPROFEN. [Suspect]
     Active Substance: IBUPROFEN
     Indication: PYREXIA
     Dosage: 200 MG, 2 OR 3 DAYS WEEK
     Dates: start: 2014
  3. LORAZEPAM. [Suspect]
     Active Substance: LORAZEPAM
     Indication: ANXIETY
  4. AROMASIN [Concomitant]
     Active Substance: EXEMESTANE
     Dosage: 25 MG, DAILY
  5. IBUPROFEN. [Suspect]
     Active Substance: IBUPROFEN
     Indication: FATIGUE
  6. CLONIDINE. [Suspect]
     Active Substance: CLONIDINE
     Indication: HOT FLUSH
     Dosage: 1 MG, UNK
     Dates: start: 2000
  7. NITROFURAL [Concomitant]
     Dosage: 50 MG, UNK
  8. IBUPROFEN. [Suspect]
     Active Substance: IBUPROFEN
     Indication: BONE PAIN
  9. LORAZEPAM. [Suspect]
     Active Substance: LORAZEPAM
     Indication: SLEEP DISORDER
     Dosage: 1 MG, DAILY
     Dates: start: 2000

REACTIONS (9)
  - Hypertension [Unknown]
  - Kidney infection [Unknown]
  - Crying [Unknown]
  - Oropharyngeal pain [Unknown]
  - Blood urine present [Unknown]
  - Stress [Unknown]
  - Urine analysis abnormal [Unknown]
  - Hypersomnia [Not Recovered/Not Resolved]
  - Malaise [Unknown]
